FAERS Safety Report 4930234-9 (Version None)
Quarter: 2006Q1

REPORT INFORMATION
  Report Type: 
  Country: None (occurrence: None)
  Receive Date: 20060302
  Receipt Date: 20060221
  Transmission Date: 20060701
  Serious: Yes (Hospitalization, Other)
  Sender: FDA-Public Use
  Company Number: US-JNJFOC-20060205340

PATIENT
  Sex: Female
  Weight: 83.01 kg

DRUGS (1)
  1. DURAGESIC-100 [Suspect]
     Route: 062

REACTIONS (4)
  - ABDOMINAL PAIN UPPER [None]
  - SEPSIS [None]
  - THROMBOSIS [None]
  - TOOTH ABSCESS [None]
